FAERS Safety Report 10795173 (Version 1)
Quarter: 2015Q1

REPORT INFORMATION
  Report Type: Spontaneous
  Country: US (occurrence: US)
  Receive Date: 20150214
  Receipt Date: 20150214
  Transmission Date: 20150721
  Serious: No
  Sender: FDA-Public Use
  Company Number: US-GLAXOSMITHKLINE-A1053692A

PATIENT

DRUGS (1)
  1. NICODERM CQ [Suspect]
     Active Substance: NICOTINE
     Indication: EX-TOBACCO USER
     Dates: start: 20131214, end: 20131216

REACTIONS (4)
  - Malaise [Not Recovered/Not Resolved]
  - Migraine [Unknown]
  - Oropharyngeal pain [Unknown]
  - Nausea [Unknown]
